FAERS Safety Report 9559957 (Version 1)
Quarter: 2013Q3

REPORT INFORMATION
  Report Type: Spontaneous
  Country: US (occurrence: US)
  Receive Date: 20130927
  Receipt Date: 20130927
  Transmission Date: 20140515
  Serious: No
  Sender: FDA-Public Use
  Company Number: US-PFIZER INC-2013274195

PATIENT
  Age: 33 Year
  Sex: Female

DRUGS (15)
  1. XELJANZ [Suspect]
     Indication: RHEUMATOID ARTHRITIS
     Dosage: 10 MG, 1X/DAY (5 MG, 2 TABLETS BY MOUTH ONCE DAILY)
     Route: 048
  2. PREDNISONE [Concomitant]
     Dosage: 10 MG
  3. METHOTREXATE [Concomitant]
     Dosage: 2.5 MG, UNK
  4. DICLOFENAC [Concomitant]
     Dosage: 75 MG, UNK
  5. PLAQUENIL [Concomitant]
     Dosage: 200 MG, UNK
  6. YAZ [Concomitant]
     Dosage: 3-0.02MG
  7. FOLIC ACID [Concomitant]
     Dosage: UNK
  8. TRAMADOL HYDROCHLORIDE [Concomitant]
     Dosage: 50 MG, UNK
  9. AMBIEN [Concomitant]
     Dosage: 10 MG, UNK
  10. MULTIVIT [Concomitant]
     Dosage: UNK
  11. VITAMIN C [Concomitant]
     Dosage: 500 MG, UNK
  12. CALCIUM + D [Concomitant]
     Dosage: UNK
  13. VITAMIN B12 [Concomitant]
     Dosage: 1000 UG, UNK
  14. VITAMIN D [Concomitant]
     Dosage: 1000 UNIT, UNK
  15. FLAXSEED OIL [Concomitant]
     Dosage: UNK

REACTIONS (1)
  - Malaise [Unknown]
